FAERS Safety Report 9646492 (Version 3)
Quarter: 2013Q4

REPORT INFORMATION
  Report Type: Spontaneous
  Country: CN (occurrence: CN)
  Receive Date: 20131025
  Receipt Date: 20131230
  Transmission Date: 20140711
  Serious: Yes (Other)
  Sender: FDA-Public Use
  Company Number: CN-ABBVIE-13P-035-1159889-00

PATIENT
  Age: 14 Year
  Sex: Male

DRUGS (2)
  1. DEPAKINE CHRONO [Suspect]
     Indication: EPILEPSY
     Route: 048
     Dates: start: 201208
  2. VITAMIN B6 [Concomitant]
     Indication: PRODUCT USED FOR UNKNOWN INDICATION
     Dates: start: 2010

REACTIONS (2)
  - Suspected counterfeit product [Recovered/Resolved]
  - Epilepsy [Recovered/Resolved]
